FAERS Safety Report 13682306 (Version 1)
Quarter: 2017Q2

REPORT INFORMATION
  Report Type: Spontaneous
  Country: US (occurrence: US)
  Receive Date: 20170622
  Receipt Date: 20170622
  Transmission Date: 20170830
  Serious: No
  Sender: FDA-Public Use
  Company Number: None

PATIENT
  Age: 30 Year
  Sex: Female

DRUGS (1)
  1. MAKENA [Suspect]
     Active Substance: HYDROXYPROGESTERONE CAPROATE
     Indication: PRENATAL CARE
     Route: 030
     Dates: start: 20170426, end: 20170621

REACTIONS (4)
  - Injection site rash [None]
  - Injection site pruritus [None]
  - Musculoskeletal disorder [None]
  - Hypoaesthesia [None]

NARRATIVE: CASE EVENT DATE: 20170620
